FAERS Safety Report 8097935-8 (Version None)
Quarter: 2012Q1

REPORT INFORMATION
  Report Type: 
  Country: None (occurrence: None)
  Receive Date: 20120126
  Receipt Date: 20120113
  Transmission Date: 20120608
  Serious: Yes (Hospitalization, Other)
  Sender: FDA-Public Use
  Company Number: 2012MA000715

PATIENT
  Sex: Female

DRUGS (15)
  1. ASPIRIN [Concomitant]
  2. GEMFIBROZIL [Concomitant]
  3. PHENAZOPYRIDINE HCL TAB [Concomitant]
  4. METFORMIN HCL [Concomitant]
  5. DIGOXIN [Suspect]
     Dosage: 250 MCG;QD;PO
     Route: 048
  6. NORVASC [Concomitant]
  7. ATENOLOL [Concomitant]
  8. BACTRIM [Concomitant]
  9. LEVOTHYROXINE SODIUM [Concomitant]
  10. MACROBID [Concomitant]
  11. NEURONTIN [Concomitant]
  12. AVANDIA [Concomitant]
  13. BYETTA [Concomitant]
  14. CELEBREX [Concomitant]
  15. LASIX [Concomitant]

REACTIONS (11)
  - ATRIAL FIBRILLATION [None]
  - VOMITING [None]
  - NAUSEA [None]
  - TYPE 2 DIABETES MELLITUS [None]
  - TOXICITY TO VARIOUS AGENTS [None]
  - RENAL FAILURE CHRONIC [None]
  - HYPERTENSION [None]
  - HYPOTHYROIDISM [None]
  - ABDOMINAL PAIN [None]
  - DEHYDRATION [None]
  - BRADYCARDIA [None]
